FAERS Safety Report 25533301 (Version 1)
Quarter: 2025Q3

REPORT INFORMATION
  Report Type: Spontaneous
  Country: US (occurrence: US)
  Receive Date: 20250709
  Receipt Date: 20250709
  Transmission Date: 20251021
  Serious: Yes (Other)
  Sender: AMGEN
  Company Number: US-AMGEN-USASP2025130910

PATIENT
  Age: 63 Year
  Sex: Female

DRUGS (3)
  1. EVENITY [Suspect]
     Active Substance: ROMOSOZUMAB-AQQG
     Indication: Osteoporosis
     Dosage: UNK UNK, QMO
     Route: 065
     Dates: start: 20241212, end: 20250211
  2. EVENITY [Suspect]
     Active Substance: ROMOSOZUMAB-AQQG
     Indication: Spinal fracture
  3. FISH OIL [Concomitant]
     Active Substance: FISH OIL
     Indication: Product used for unknown indication
     Route: 065

REACTIONS (12)
  - Angina pectoris [Unknown]
  - Injection site pain [Unknown]
  - Pain [Not Recovered/Not Resolved]
  - Back pain [Unknown]
  - Headache [Recovered/Resolved]
  - Muscle tightness [Unknown]
  - Bone pain [Unknown]
  - Fatigue [Unknown]
  - Chest pain [Unknown]
  - Diarrhoea [Unknown]
  - Muscle twitching [Unknown]
  - Muscle injury [Unknown]

NARRATIVE: CASE EVENT DATE: 20241201
